FAERS Safety Report 14346376 (Version 2)
Quarter: 2018Q1

REPORT INFORMATION
  Report Type: Spontaneous
  Country: JP (occurrence: JP)
  Receive Date: 20180103
  Receipt Date: 20180115
  Transmission Date: 20180509
  Serious: Yes (Other)
  Sender: FDA-Public Use
  Company Number: JP-JNJFOC-20171238717

PATIENT
  Age: 76 Year
  Sex: Male

DRUGS (2)
  1. QUETIAPINE FUMARATE. [Suspect]
     Active Substance: QUETIAPINE FUMARATE
     Indication: PRODUCT USED FOR UNKNOWN INDICATION
     Route: 048
  2. REMINYL [Suspect]
     Active Substance: GALANTAMINE
     Indication: DEMENTIA ALZHEIMER^S TYPE
     Route: 048
     Dates: start: 201504

REACTIONS (2)
  - Parkinsonism [Recovered/Resolved]
  - Blood creatine phosphokinase increased [Recovered/Resolved]
